FAERS Safety Report 25752733 (Version 1)
Quarter: 2025Q3

REPORT INFORMATION
  Report Type: Spontaneous
  Country: EU (occurrence: EU)
  Receive Date: 20250902
  Receipt Date: 20250902
  Transmission Date: 20251021
  Serious: Yes (Death, Hospitalization, Other)
  Sender: PFIZER
  Company Number: None

PATIENT
  Age: 77 Year
  Sex: Female
  Weight: 55 kg

DRUGS (14)
  1. METHOTREXATE SODIUM [Suspect]
     Active Substance: METHOTREXATE SODIUM
     Indication: Rheumatoid arthritis
     Dosage: 2-0-0 ON WEDNESDAYS; FOR MANY YEARS
     Route: 048
  2. METAMIZOLE [Suspect]
     Active Substance: METAMIZOLE
     Indication: Pain
     Dosage: 500 MG, 4X/DAY (1-1-1-1)
     Route: 048
     Dates: start: 20250717
  3. METOPROLOL SUCCINATE [Concomitant]
     Active Substance: METOPROLOL SUCCINATE
     Indication: Hypertension
     Dosage: 0.5 DF, 1X/DAY (0,5-0-0; LONG-TERM MEDICATION, RETARD FORM)
     Route: 048
  4. ATORVASTATIN [Concomitant]
     Active Substance: ATORVASTATIN
     Dosage: 10 MG, 1X/DAY (0-0-1; LONG-TERM MEDICATION)
     Route: 048
  5. RAMIPRIL [Concomitant]
     Active Substance: RAMIPRIL
     Dosage: 5 MG, 2X/DAY (1-0-1; LONG-TERM MEDICATION)
     Route: 048
  6. CALCIUM\CHOLECALCIFEROL [Concomitant]
     Active Substance: CALCIUM\CHOLECALCIFEROL
     Dosage: 1 DF, 2X/DAY (1-0-1; LONG-TERM MEDICATION)
     Route: 048
  7. AMLODIPINE [Concomitant]
     Active Substance: AMLODIPINE BESYLATE
     Dosage: 2 MG, 2X/DAY (1-0-1; LONG-TERM MEDICATION)
     Route: 048
  8. DOXAZOSIN [Concomitant]
     Active Substance: DOXAZOSIN MESYLATE
     Dosage: 2 MG, 1X/DAY (0-1-0; LONG-TERM MEDICATION)
     Route: 048
  9. ASPIRIN [Concomitant]
     Active Substance: ASPIRIN
     Indication: Transient ischaemic attack
     Dosage: 100 MG, 1X/DAY (1-0-0; LONG-TERM MEDICATION)
     Route: 048
  10. PREGABALIN [Concomitant]
     Active Substance: PREGABALIN
     Indication: Pain
     Dosage: 75 MG, 2X/DAY (1-0-1)
     Route: 048
     Dates: start: 20250717
  11. TAPENTADOL [Concomitant]
     Active Substance: TAPENTADOL
     Indication: Pain
     Dosage: 25 MG, 2X/DAY (1-0-1, RETARD FORM)
     Route: 048
     Dates: start: 20250717
  12. BUDESONIDE\FORMOTEROL [Concomitant]
     Active Substance: BUDESONIDE\FORMOTEROL
     Dosage: 1 DF, 2X/DAY (1-0-1; LONG-TERM MEDICATION)
     Route: 055
  13. FOLIC ACID [Concomitant]
     Active Substance: FOLIC ACID
     Indication: Drug therapy
     Dosage: 10 MG, WEEKLY (1-0-1 ON THURSDAYS; LONG-TERM MEDICATION)
     Route: 048
  14. OPIPRAMOL [Concomitant]
     Active Substance: OPIPRAMOL
     Dosage: 50 MG, 1X/DAY (0-1-0; LONG-TERM MEDICATION)
     Route: 048

REACTIONS (12)
  - Multiple organ dysfunction syndrome [Fatal]
  - Pulmonary sepsis [Fatal]
  - Neutropenia [Fatal]
  - Renal impairment [Fatal]
  - Pancytopenia [Fatal]
  - Acute kidney injury [Fatal]
  - Agranulocytosis [Fatal]
  - Thrombocytopenia [Fatal]
  - Atrial fibrillation [Fatal]
  - Normochromic normocytic anaemia [Fatal]
  - Mucosal inflammation [Fatal]
  - Mouth haemorrhage [Fatal]

NARRATIVE: CASE EVENT DATE: 20250803
